FAERS Safety Report 11952392 (Version 2)
Quarter: 2016Q1

REPORT INFORMATION
  Report Type: Other
  Country: DE (occurrence: DE)
  Receive Date: 20160126
  Receipt Date: 20160301
  Transmission Date: 20160526
  Serious: Yes (Hospitalization, Other)
  Sender: FDA-Public Use
  Company Number: DE-SHIRE-DE201600174

PATIENT
  Age: 43 Year
  Sex: Female
  Weight: 36.5 kg

DRUGS (4)
  1. REVESTIVE [Suspect]
     Active Substance: TEDUGLUTIDE
     Indication: SHORT-BOWEL SYNDROME
     Dosage: 0.2 ML, 1X/DAY:QD
     Route: 058
     Dates: start: 20151210
  2. CREON [Concomitant]
     Active Substance: PANCRELIPASE AMYLASE\PANCRELIPASE LIPASE\PANCRELIPASE PROTEASE
     Indication: PRODUCT USED FOR UNKNOWN INDICATION
     Dosage: 250000 CAPS, 1 MORNING AND EVENING, 2 AT MIDDAY (AND AS NEEDED)
     Route: 065
  3. CLEVIPREX [Concomitant]
     Active Substance: CLEVIDIPINE
     Indication: PRODUCT USED FOR UNKNOWN INDICATION
     Dosage: 5600 IU, 1X/DAY:QD
     Route: 058
  4. PREDNISOLONE. [Concomitant]
     Active Substance: PREDNISOLONE
     Indication: PRODUCT USED FOR UNKNOWN INDICATION
     Dosage: 7.5 MG, 1X/DAY:QD
     Route: 065

REACTIONS (6)
  - Deep vein thrombosis [Unknown]
  - Pulmonary embolism [Unknown]
  - Catheter site inflammation [Unknown]
  - Nausea [Unknown]
  - Venous occlusion [Unknown]
  - Groin pain [Unknown]

NARRATIVE: CASE EVENT DATE: 20151231
